FAERS Safety Report 19486821 (Version 1)
Quarter: 2021Q3

REPORT INFORMATION
  Report Type: Spontaneous
  Country: US (occurrence: US)
  Receive Date: 20210702
  Receipt Date: 20210702
  Transmission Date: 20211014
  Serious: Yes (Other)
  Sender: FDA-Public Use
  Company Number: US-TOLMAR, INC.-21US028531

PATIENT
  Age: 38 Year
  Sex: Female

DRUGS (1)
  1. ELIGARD [Suspect]
     Active Substance: LEUPROLIDE ACETATE
     Indication: ENDOMETRIOSIS
     Dosage: UNK

REACTIONS (4)
  - Ovarian endometrioid carcinoma [Recovered/Resolved]
  - Ovarian rupture [Recovered/Resolved]
  - Off label use [Unknown]
  - Pelvic adhesions [Recovered/Resolved]
